FAERS Safety Report 8937180 (Version 1)
Quarter: 2012Q4

REPORT INFORMATION
  Report Type: 
  Country: US (occurrence: None)
  Receive Date: 20121128
  Receipt Date: 20121128
  Transmission Date: 20130627
  Serious: Yes (Other)
  Sender: FDA-Public Use
  Company Number: None

PATIENT
  Age: 91 Year
  Sex: Female
  Weight: 54.43 kg

DRUGS (1)
  1. LIDODERM 5 [Suspect]
     Indication: ARTHRITIC PAINS
     Dosage: used  3 x 5 ... on arm,,  .... external
     Dates: start: 20121019

REACTIONS (8)
  - Oedema peripheral [None]
  - Contusion [None]
  - Haemoglobin decreased [None]
  - Asthenia [None]
  - Visual impairment [None]
  - Malaise [None]
  - Erythema [None]
  - Skin warm [None]
